FAERS Safety Report 14896864 (Version 3)
Quarter: 2018Q2

REPORT INFORMATION
  Report Type: Report from Study
  Country: JP (occurrence: JP)
  Receive Date: 20180515
  Receipt Date: 20180531
  Transmission Date: 20180711
  Serious: Yes (Hospitalization, Other)
  Sender: FDA-Public Use
  Company Number: JP-ASTRAZENECA-2018SE34608

PATIENT
  Age: 73 Year
  Sex: Female
  Weight: 52 kg

DRUGS (11)
  1. TAGRISSO [Suspect]
     Active Substance: OSIMERTINIB
     Indication: NON-SMALL CELL LUNG CANCER
     Dosage: ONE FOURTH THE NORMAL DOSE
     Route: 048
     Dates: start: 201801
  2. METHYCOBAL [Concomitant]
     Active Substance: METHYLCOBALAMIN
     Indication: NEUROPATHY PERIPHERAL
     Route: 048
  3. TEARBALANCE [Concomitant]
     Active Substance: HYALURONATE SODIUM
     Indication: GLAUCOMA
     Dosage: 4 DAILY
     Route: 047
  4. TAPROS [Concomitant]
     Indication: GLAUCOMA
     Dosage: 1 DAILY
     Route: 047
  5. TAGRISSO [Suspect]
     Active Substance: OSIMERTINIB
     Indication: NON-SMALL CELL LUNG CANCER
     Route: 048
     Dates: start: 20160414, end: 20160803
  6. TAGRISSO [Suspect]
     Active Substance: OSIMERTINIB
     Indication: NON-SMALL CELL LUNG CANCER
     Route: 048
     Dates: start: 20160804, end: 20171027
  7. FOSAMAC [Concomitant]
     Active Substance: ALENDRONATE SODIUM
     Indication: OSTEOPOROSIS
     Route: 048
  8. ALPHAGAN P [Concomitant]
     Active Substance: BRIMONIDINE TARTRATE
     Indication: GLAUCOMA
     Dosage: 2 DAILY
     Route: 047
  9. PARIET [Concomitant]
     Active Substance: RABEPRAZOLE SODIUM
     Indication: CHRONIC GASTRITIS
     Route: 048
  10. BROTIZOLAM [Concomitant]
     Active Substance: BROTIZOLAM
     Indication: INSOMNIA
     Route: 048
  11. AZOPT [Concomitant]
     Active Substance: BRINZOLAMIDE
     Indication: GLAUCOMA
     Dosage: 2 DAILY
     Route: 047

REACTIONS (5)
  - Cardiac failure acute [Recovering/Resolving]
  - Decreased appetite [Recovered/Resolved]
  - Myocardial ischaemia [Recovering/Resolving]
  - Electrocardiogram QT prolonged [Recovering/Resolving]
  - Off label use [Unknown]

NARRATIVE: CASE EVENT DATE: 20160804
